FAERS Safety Report 5628548-2 (Version None)
Quarter: 2008Q1

REPORT INFORMATION
  Report Type: 
  Country: None (occurrence: None)
  Receive Date: 20080214
  Receipt Date: 20080214
  Transmission Date: 20080703
  Serious: Yes (Death, Hospitalization)
  Sender: FDA-Public Use
  Company Number: None

PATIENT
  Age: 60 Year
  Sex: Male
  Weight: 69.4 kg

DRUGS (11)
  1. XELODA [Suspect]
     Indication: OESOPHAGEAL CARCINOMA
     Dosage: 1000 MG/M2 BID Q 14 DAY CYCLE 2
     Dates: start: 20080107, end: 20080120
  2. OXALIPLATIN [Suspect]
     Indication: OESOPHAGEAL CARCINOMA
     Dosage: 70 MG/M2 DAY1, 8OF21
     Dates: start: 20071217
  3. OXALIPLATIN [Suspect]
     Indication: OESOPHAGEAL CARCINOMA
     Dosage: 70 MG/M2 DAY1, 8OF21
     Dates: start: 20071224
  4. OXALIPLATIN [Suspect]
     Indication: OESOPHAGEAL CARCINOMA
     Dosage: 70 MG/M2 DAY1, 8OF21
     Dates: start: 20080107
  5. OXALIPLATIN [Suspect]
     Indication: OESOPHAGEAL CARCINOMA
     Dosage: 70 MG/M2 DAY1, 8OF21
     Dates: start: 20080114
  6. POTASSIUM CHLORIDE [Concomitant]
  7. LORAZEPAM [Concomitant]
  8. LOMOTIL [Concomitant]
  9. DIOVAN [Concomitant]
  10. IMODIUM [Concomitant]
  11. COMPAZINE [Concomitant]

REACTIONS (13)
  - CARDIAC FAILURE [None]
  - CONDITION AGGRAVATED [None]
  - CYTOMEGALOVIRUS TEST POSITIVE [None]
  - DIARRHOEA [None]
  - HAEMOGLOBIN DECREASED [None]
  - HYPOTENSION [None]
  - HYPOXIA [None]
  - LUNG INFILTRATION [None]
  - METABOLIC ACIDOSIS [None]
  - NAUSEA [None]
  - SEPSIS [None]
  - THROMBOCYTOPENIA [None]
  - VOMITING [None]
